FAERS Safety Report 8442590-8 (Version None)
Quarter: 2012Q2

REPORT INFORMATION
  Report Type: 
  Country: None (occurrence: None)
  Receive Date: 20120323
  Receipt Date: 20110627
  Transmission Date: 20120825
  Serious: Yes (Hospitalization)
  Sender: FDA-Public Use
  Company Number: 163-21880-11063482

PATIENT
  Age: 67 Year
  Sex: Male

DRUGS (10)
  1. SPIRIVA [Concomitant]
  2. SYMBICORT (SYMBICORT TURBUHALER ^DRACO:) [Concomitant]
  3. ATIVAN [Concomitant]
  4. LANTUS [Concomitant]
  5. BACTRIM DS [Concomitant]
  6. CREON [Concomitant]
  7. REVLIMID [Suspect]
     Indication: MYELODYSPLASTIC SYNDROME
     Dosage: 10 MG, X 21 DAYS, PO
     Route: 048
     Dates: start: 20110413
  8. ATENOLOL [Concomitant]
  9. PRANDIN (PREPAGLINIDE) [Concomitant]
  10. NORVASC [Concomitant]

REACTIONS (3)
  - RED BLOOD CELL COUNT DECREASED [None]
  - WHITE BLOOD CELL COUNT DECREASED [None]
  - PNEUMONIA [None]
